FAERS Safety Report 23867595 (Version 1)
Quarter: 2024Q2

REPORT INFORMATION
  Report Type: Spontaneous
  Country: US (occurrence: US)
  Receive Date: 20240517
  Receipt Date: 20240517
  Transmission Date: 20240715
  Serious: No
  Sender: FDA-Public Use
  Company Number: US-TEVA-VS-3193034

PATIENT
  Age: 38 Year
  Sex: Female
  Weight: 76.2 kg

DRUGS (16)
  1. AJOVY [Suspect]
     Active Substance: FREMANEZUMAB-VFRM
     Indication: Migraine
     Dosage: 225 MG MONTHLY
     Route: 065
     Dates: start: 20240401
  2. AJOVY [Suspect]
     Active Substance: FREMANEZUMAB-VFRM
  3. Lo lo-estrin [Concomitant]
     Indication: Product used for unknown indication
     Route: 065
  4. Trokendi ER [Concomitant]
     Indication: Product used for unknown indication
     Route: 065
  5. BUSPIRONE [Concomitant]
     Active Substance: BUSPIRONE HYDROCHLORIDE
     Indication: Product used for unknown indication
     Route: 065
  6. BUPROPION [Concomitant]
     Active Substance: BUPROPION
     Indication: Product used for unknown indication
     Route: 065
  7. PANTOPRAZOLE [Concomitant]
     Active Substance: PANTOPRAZOLE
     Indication: Product used for unknown indication
     Route: 065
  8. MODAFINIL [Concomitant]
     Active Substance: MODAFINIL
     Indication: Product used for unknown indication
     Route: 065
  9. Benadryl daily [Concomitant]
     Indication: Product used for unknown indication
     Route: 065
  10. ZYRTEC [Concomitant]
     Active Substance: CETIRIZINE HYDROCHLORIDE
     Indication: Product used for unknown indication
     Route: 065
  11. MENAQUINONE 6 [Concomitant]
     Active Substance: MENAQUINONE 6
     Indication: Product used for unknown indication
     Route: 065
  12. 60 mg oral prednisone [Concomitant]
     Indication: Product used for unknown indication
     Route: 048
  13. Ligaplex 2 [Concomitant]
     Indication: Product used for unknown indication
     Route: 065
  14. L-methyl folate [Concomitant]
     Indication: Product used for unknown indication
     Route: 065
  15. L-methyl folate [Concomitant]
     Indication: Product used for unknown indication
     Route: 065
  16. VITAMIN D3 [Concomitant]
     Active Substance: CHOLECALCIFEROL
     Indication: Product used for unknown indication
     Route: 065

REACTIONS (6)
  - Urticaria [Recovering/Resolving]
  - Scab [Recovering/Resolving]
  - Papule [Recovering/Resolving]
  - Pustule [Recovering/Resolving]
  - Pruritus [Recovering/Resolving]
  - Rash [Recovering/Resolving]

NARRATIVE: CASE EVENT DATE: 20240409
